FAERS Safety Report 6179425-2 (Version None)
Quarter: 2009Q2

REPORT INFORMATION
  Report Type: 
  Country: None (occurrence: None)
  Receive Date: 20090505
  Receipt Date: 20090422
  Transmission Date: 20091009
  Serious: Yes (Life-Threatening, Hospitalization)
  Sender: FDA-Public Use
  Company Number: B0410424A

PATIENT
  Sex: Female
  Weight: 68 kg

DRUGS (2)
  1. LAMICTAL [Suspect]
     Indication: BIPOLAR DISORDER
     Dosage: 50MG TWICE PER DAY
     Route: 048
     Dates: start: 20060125, end: 20060208
  2. PAROXETINE HCL [Concomitant]
     Indication: BIPOLAR DISORDER
     Dosage: 1.5TAB PER DAY
     Route: 048

REACTIONS (49)
  - ANXIETY [None]
  - BLEPHARITIS [None]
  - BLINDNESS [None]
  - BRONCHOPNEUMONIA [None]
  - CATARACT [None]
  - CONJUNCTIVAL HYPERAEMIA [None]
  - CONJUNCTIVITIS [None]
  - CORNEAL DISORDER [None]
  - CORNEAL LEUKOMA [None]
  - DEPRESSED MOOD [None]
  - DEPRESSION [None]
  - DISTICHIASIS [None]
  - DRY EYE [None]
  - DRY SKIN [None]
  - DYSPHORIA [None]
  - EAR PAIN [None]
  - ENTROPION [None]
  - ERYTHEMA MULTIFORME [None]
  - EYE DISORDER [None]
  - FUNDOSCOPY ABNORMAL [None]
  - HEADACHE [None]
  - HYPERSENSITIVITY [None]
  - HYPERTHERMIA [None]
  - HYPOACUSIS [None]
  - IRRITABILITY [None]
  - LYMPHADENITIS [None]
  - LYMPHADENOPATHY [None]
  - MALAISE [None]
  - MALNUTRITION [None]
  - NASAL CONGESTION [None]
  - ODYNOPHAGIA [None]
  - OTITIS MEDIA [None]
  - PHOTOPHOBIA [None]
  - PNEUMONIA STAPHYLOCOCCAL [None]
  - PYREXIA [None]
  - RASH [None]
  - RASH GENERALISED [None]
  - RESPIRATORY DISORDER [None]
  - RESPIRATORY FAILURE [None]
  - RHINORRHOEA [None]
  - SALIVARY HYPERSECRETION [None]
  - STEVENS-JOHNSON SYNDROME [None]
  - SUBRETINAL FIBROSIS [None]
  - SYMBLEPHARON [None]
  - TACHYCARDIA [None]
  - TINNITUS [None]
  - TOXIC EPIDERMAL NECROLYSIS [None]
  - TRICHIASIS [None]
  - TRIGEMINAL NEURALGIA [None]
